FAERS Safety Report 5429489-6 (Version None)
Quarter: 2007Q3

REPORT INFORMATION
  Report Type: 
  Country: None (occurrence: None)
  Receive Date: 20070829
  Receipt Date: 20070823
  Transmission Date: 20080115
  Serious: Yes (Hospitalization)
  Sender: FDA-Public Use
  Company Number: B0483871A

PATIENT
  Age: 41 Year
  Sex: Male

DRUGS (2)
  1. MALARONE [Suspect]
     Indication: PROPHYLAXIS
     Dosage: 1TAB PER DAY
     Route: 048
     Dates: start: 20070722, end: 20070801
  2. YELLOW FEVER VACCINE [Concomitant]

REACTIONS (5)
  - ABDOMINAL PAIN UPPER [None]
  - DYSPNOEA [None]
  - FATIGUE [None]
  - PNEUMOTHORAX [None]
  - TOTAL LUNG CAPACITY DECREASED [None]
